FAERS Safety Report 21568525 (Version 1)
Quarter: 2022Q4

REPORT INFORMATION
  Report Type: Spontaneous
  Country: FR (occurrence: FR)
  Receive Date: 20221108
  Receipt Date: 20221108
  Transmission Date: 20230112
  Serious: Yes (Hospitalization, Other)
  Sender: FDA-Public Use
  Company Number: FR-OTSUKA-2016_010509

PATIENT
  Age: 31 Year
  Sex: Male
  Weight: 52 kg

DRUGS (37)
  1. AMIKACIN [Suspect]
     Active Substance: AMIKACIN
     Indication: Tuberculosis
     Dosage: DOSAGE FORM: UNSPECIFIED?UNIT DOSE - 400MG
  2. LINEZOLID [Suspect]
     Active Substance: LINEZOLID
     Indication: Pulmonary tuberculosis
     Dosage: DOSAGE FORM: UNSPECIFIED
     Dates: end: 201509
  3. AMOXICILLIN\CLAVULANIC ACID [Suspect]
     Active Substance: AMOXICILLIN\CLAVULANIC ACID
     Indication: Tuberculosis
     Dosage: DOSAGE FORM: UNSPECIFIED?UNIT DOSE - 1500MG
  4. CLOFAZIMINE [Suspect]
     Active Substance: CLOFAZIMINE
     Indication: Pulmonary tuberculosis
     Dosage: DOSAGE FORM: UNSPECIFIED
  5. MOXIFLOXACIN HYDROCHLORIDE [Suspect]
     Active Substance: MOXIFLOXACIN HYDROCHLORIDE
     Indication: Pulmonary tuberculosis
     Dosage: DOSAGE FORM: UNSPECIFIED
     Dates: end: 201509
  6. PARA-AMINOSALICYLIC ACID [Suspect]
     Active Substance: AMINOSALICYLIC ACID
     Indication: Tuberculosis
     Dosage: DOSAGE FORM: UNSPECIFIED, (50 MG TAB)?UNIT DOSE - 8G
     Dates: start: 20150828
  7. MIANSERIN HYDROCHLORIDE [Suspect]
     Active Substance: MIANSERIN HYDROCHLORIDE
     Indication: Impulsive behaviour
     Dosage: 10 MG, QD?ROA-20053000
     Route: 048
  8. MIANSERIN HYDROCHLORIDE [Suspect]
     Active Substance: MIANSERIN HYDROCHLORIDE
     Indication: Impulsive behaviour
  9. MIANSERIN HYDROCHLORIDE [Suspect]
     Active Substance: MIANSERIN HYDROCHLORIDE
     Indication: Anxiety
  10. CYCLOSERINE [Suspect]
     Active Substance: CYCLOSERINE
     Indication: Tuberculosis
     Dosage: 250 MG, QD?ROA-20053000
     Route: 048
     Dates: start: 20150828
  11. CYCLOSERINE [Suspect]
     Active Substance: CYCLOSERINE
     Indication: Tuberculosis
  12. HERBALS [Suspect]
     Active Substance: HERBALS
     Indication: Tuberculosis
     Dosage: 200 MG, 3 TIMES BY WEEK?UNIT DOSE - 600MG
     Dates: start: 20150828, end: 20160420
  13. HERBALS [Suspect]
     Active Substance: HERBALS
     Indication: Pulmonary tuberculosis
     Dosage: 200 MG, 3 TIMES BY WEEK?ROA-20053000
     Route: 048
     Dates: start: 20150828, end: 20160420
  14. HERBALS [Suspect]
     Active Substance: HERBALS
     Indication: Tuberculosis
  15. AMIKACIN SULFATE [Suspect]
     Active Substance: AMIKACIN SULFATE
     Indication: Tuberculosis
     Dosage: UNK?ROA-20045000
     Route: 042
     Dates: start: 20150828, end: 20150828
  16. AMIKACIN SULFATE [Suspect]
     Active Substance: AMIKACIN SULFATE
     Indication: Tuberculosis
     Dosage: DOSAGE FORM: UNSPECIFIED?UNIT DOSE - 500MG
     Dates: start: 20150828, end: 20150828
  17. DELAMANID [Suspect]
     Active Substance: DELAMANID
     Indication: Tuberculosis
     Dosage: 200 MG, QD?ROA-20053000
     Route: 048
     Dates: start: 20151002, end: 20160420
  18. CILASTATIN SODIUM\IMIPENEM [Suspect]
     Active Substance: CILASTATIN SODIUM\IMIPENEM
     Indication: Pulmonary tuberculosis
     Dosage: DOSAGE FORM: UNSPECIFIED?UNIT DOSE - 3G
     Dates: start: 20150922
  19. IMIPENEM [Suspect]
     Active Substance: IMIPENEM
     Indication: Tuberculosis
     Dosage: DOSAGE FORM: UNSPECIFIED?UNIT DOSE - 3
  20. AMINOSALICYLIC ACID [Suspect]
     Active Substance: AMINOSALICYLIC ACID
     Indication: Tuberculosis
     Dosage: 8 G, QD?ROA-20053000
     Route: 048
     Dates: start: 20150828
  21. AMINOSALICYLIC ACID [Suspect]
     Active Substance: AMINOSALICYLIC ACID
     Indication: Tuberculosis
  22. DELAMANID [Suspect]
     Active Substance: DELAMANID
     Indication: Pulmonary tuberculosis
     Dosage: DOSAGE FORM: UNSPECIFIED
  23. LAMPRENE [Suspect]
     Active Substance: CLOFAZIMINE
     Indication: Tuberculosis
     Dosage: 100 MG, QD?ROA-20053000
     Route: 048
     Dates: start: 20150912, end: 20160420
  24. LAMPRENE [Suspect]
     Active Substance: CLOFAZIMINE
     Indication: Tuberculosis
     Dosage: 100 MG, QD
     Route: 048
     Dates: start: 20150912, end: 20160420
  25. DELAMANID [Suspect]
     Active Substance: DELAMANID
     Indication: Tuberculosis
     Dosage: 200 MG, QD, DOSAGE FORM: UNSPECIFIED, 4 TABLETS
     Dates: start: 20151002, end: 20160420
  26. MAGNESIUM [Concomitant]
     Active Substance: MAGNESIUM
     Indication: Product used for unknown indication
     Dosage: DOSAGE FORM: UNSPECIFIED
  27. POTASSIUM CHLORIDE [Concomitant]
     Active Substance: POTASSIUM CHLORIDE
     Indication: Product used for unknown indication
     Dosage: DOSAGE FORM: UNSPECIFIED?UNIT DOSE - 1200MG
  28. DAFALGAN [Concomitant]
     Active Substance: ACETAMINOPHEN
     Indication: Product used for unknown indication
     Dosage: DOSAGE FORM: UNSPECIFIED, ONLY IF NEEDED
  29. PRIMPERAN [Concomitant]
     Active Substance: METOCLOPRAMIDE HYDROCHLORIDE
     Indication: Product used for unknown indication
     Dosage: DOSAGE FORM: UNSPECIFIED, IF NEEDED?UNIT DOSE - 20MG
  30. FERROUS SULFATE [Concomitant]
     Active Substance: FERROUS SULFATE
     Indication: Product used for unknown indication
     Dosage: DOSAGE FORM: UNSPECIFIED
  31. PYRIDOXINE HYDROCHLORIDE\THIAMINE HYDROCHLORIDE [Concomitant]
     Active Substance: PYRIDOXINE HYDROCHLORIDE\THIAMINE HYDROCHLORIDE
     Indication: Product used for unknown indication
     Dosage: 2 DF
  32. PRAZEPAM [Concomitant]
     Active Substance: PRAZEPAM
     Indication: Anxiety
     Dosage: DOSAGE FORM: UNSPECIFIED, 10 DROPS PER DAY,  ONLY IF NEEDED
     Dates: start: 20151006
  33. CHOLECALCIFEROL [Concomitant]
     Active Substance: CHOLECALCIFEROL
     Indication: Tuberculosis
     Dosage: DOSAGE FORM: UNSPECIFIED, 100 000 IU/14 DAYS
  34. NIACINAMIDE [Concomitant]
     Active Substance: NIACINAMIDE
     Indication: Product used for unknown indication
     Dosage: DOSAGE FORM: UNSPECIFIED?UNIT DOSE - 1DF
  35. ESOMEPRAZOLE [Concomitant]
     Active Substance: ESOMEPRAZOLE
     Indication: Product used for unknown indication
     Dosage: DOSAGE FORM: UNSPECIFIED
  36. RACECADOTRIL [Concomitant]
     Active Substance: RACECADOTRIL
     Indication: Product used for unknown indication
     Dosage: 1 DF
  37. PHLOROGLUCINOL [Concomitant]
     Active Substance: PHLOROGLUCINOL
     Indication: Product used for unknown indication
     Dosage: DOSAGE FORM: UNSPECIFIED, IF NEEDED?UNIT DOSE - 240MG

REACTIONS (5)
  - Intracardiac mass [Recovered/Resolved]
  - Long QT syndrome [None]
  - Electrocardiogram QT prolonged [None]
  - Benign soft tissue neoplasm [Recovered/Resolved]
  - Fibroma [Recovered/Resolved]

NARRATIVE: CASE EVENT DATE: 20160226
